FAERS Safety Report 13472651 (Version 2)
Quarter: 2017Q3

REPORT INFORMATION
  Report Type: Spontaneous
  Country: FR (occurrence: FR)
  Receive Date: 20170424
  Receipt Date: 20170711
  Transmission Date: 20171127
  Serious: Yes (Hospitalization, Other)
  Sender: FDA-Public Use
  Company Number: FR-PFIZER INC-2017171768

PATIENT
  Age: 80 Year
  Sex: Female

DRUGS (10)
  1. OXYNORMORO [Suspect]
     Active Substance: OXYCODONE
     Dosage: 10 MG, AS NEEDED BEFORE PHYSICAL THERAPY
     Route: 048
     Dates: start: 20170316, end: 20170401
  2. LYRICA [Suspect]
     Active Substance: PREGABALIN
     Dosage: 1 DF, 2X/DAY
     Route: 048
     Dates: end: 20170401
  3. BISOCE [Suspect]
     Active Substance: BISOPROLOL
     Indication: HYPERTENSION
     Dosage: 5 MG, 1X/DAY
     Route: 048
     Dates: end: 20170401
  4. EUPANTOL [Concomitant]
     Active Substance: PANTOPRAZOLE SODIUM
     Dosage: UNK
  5. OXYNORMORO [Suspect]
     Active Substance: OXYCODONE
     Dosage: 5 MG, EVERY 4 HRS
     Route: 048
     Dates: start: 20170316, end: 20170401
  6. DUROGESIC [Suspect]
     Active Substance: FENTANYL
     Dosage: 25 ?G/HOUR (4.2 MG/10.5 CM2),1 DF, EVERY 72 HOURS
     Route: 003
     Dates: end: 20170401
  7. MIRTAZAPINE. [Suspect]
     Active Substance: MIRTAZAPINE
     Dosage: 1 DF, 1X/DAY
     Route: 048
     Dates: start: 2017, end: 20170401
  8. BACLOFEN. [Suspect]
     Active Substance: BACLOFEN
     Indication: MUSCLE SPASTICITY
     Dosage: 5 MG, 2X/DAY
     Route: 048
     Dates: start: 20170316, end: 20170401
  9. LOVENOX [Concomitant]
     Active Substance: ENOXAPARIN SODIUM
     Dosage: UNK
  10. DAFALGAN [Concomitant]
     Active Substance: ACETAMINOPHEN
     Dosage: UNK

REACTIONS (5)
  - Hypoventilation [Recovered/Resolved]
  - Hypernatraemia [Recovered/Resolved]
  - Acute kidney injury [Unknown]
  - Dehydration [Unknown]
  - Coma [Recovered/Resolved]

NARRATIVE: CASE EVENT DATE: 20170401
